FAERS Safety Report 8208178 (Version 3)
Quarter: 2012Q4

REPORT INFORMATION
  Report Type: Report from Study
  Country: US (occurrence: US)
  Receive Date: 20111028
  Receipt Date: 20121023
  Transmission Date: 20130627
  Serious: Yes (Hospitalization)
  Sender: FDA-Public Use
  Company Number: US-JNJFOC-20111010241

PATIENT
  Age: 16 Year
  Sex: Male
  Weight: 97.4 kg

DRUGS (3)
  1. REMICADE [Suspect]
     Indication: CROHN^S DISEASE
     Route: 042
     Dates: start: 20081222
  2. RANITIDINE [Concomitant]
  3. HYOSCYAMINE SULFATE [Concomitant]

REACTIONS (1)
  - Abdominal pain upper [Not Recovered/Not Resolved]
